FAERS Safety Report 8485994-X (Version None)
Quarter: 2012Q3

REPORT INFORMATION
  Report Type: 
  Country: None (occurrence: None)
  Receive Date: 20120703
  Receipt Date: 20120619
  Transmission Date: 20120928
  Serious: No
  Sender: FDA-Public Use
  Company Number: US-ASTRAZENECA-2012SE41103

PATIENT
  Age: 68 Year
  Sex: Female
  Weight: 63.5 kg

DRUGS (7)
  1. NEXIUM [Suspect]
     Route: 048
  2. TUMS SUPPLEMENTAL [Concomitant]
  3. FOSAMAX [Concomitant]
  4. LEVOXYL [Concomitant]
     Indication: THYROID DISORDER
  5. NEXIUM [Suspect]
     Indication: GASTROOESOPHAGEAL REFLUX DISEASE
     Route: 048
  6. NEXIUM [Suspect]
     Indication: OESOPHAGEAL ULCER
     Route: 048
  7. NEXIUM [Suspect]
     Route: 048

REACTIONS (3)
  - APHAGIA [None]
  - DYSPEPSIA [None]
  - DRUG INEFFECTIVE [None]
